FAERS Safety Report 23793258 (Version 1)
Quarter: 2024Q2

REPORT INFORMATION
  Report Type: Spontaneous
  Country: FR (occurrence: FR)
  Receive Date: 20240429
  Receipt Date: 20240429
  Transmission Date: 20240715
  Serious: Yes (Hospitalization, Other)
  Sender: FDA-Public Use
  Company Number: None

PATIENT
  Age: 69 Year
  Sex: Male

DRUGS (8)
  1. RIFAMPIN [Suspect]
     Active Substance: RIFAMPIN
     Indication: Lymphadenitis
     Dosage: 600 MG, QD
     Route: 048
     Dates: start: 20240119, end: 20240126
  2. PYRAZINAMIDE [Suspect]
     Active Substance: PYRAZINAMIDE
     Indication: Lymphadenitis
     Dosage: 1500 MG, QD
     Route: 048
     Dates: start: 20240119, end: 20240126
  3. ISONIAZID [Suspect]
     Active Substance: ISONIAZID
     Indication: Lymphadenitis
     Dosage: 300 MG, QD
     Route: 048
     Dates: start: 20240119, end: 20240126
  4. ETHAMBUTOL HYDROCHLORIDE [Suspect]
     Active Substance: ETHAMBUTOL HYDROCHLORIDE
     Indication: Lymphadenitis
     Dosage: 1500 MG, QD
     Route: 048
     Dates: start: 20240119, end: 20240126
  5. JANUVIA [Concomitant]
     Active Substance: SITAGLIPTIN PHOSPHATE
     Dosage: UNK
  6. INSULIN GLARGINE [Concomitant]
     Active Substance: INSULIN GLARGINE
     Dosage: UNK
  7. BRINZOLAMIDE [Concomitant]
     Active Substance: BRINZOLAMIDE
     Dosage: UNK
  8. DEXAMETHASONE SODIUM PHOSPHATE [Concomitant]
     Active Substance: DEXAMETHASONE PHOSPHATE\DEXAMETHASONE SODIUM PHOSPHATE
     Dosage: UNK

REACTIONS (1)
  - Linear IgA disease [Not Recovered/Not Resolved]

NARRATIVE: CASE EVENT DATE: 20240125
